FAERS Safety Report 10225883 (Version 2)
Quarter: 2014Q2

REPORT INFORMATION
  Report Type: Spontaneous
  Country: US (occurrence: US)
  Receive Date: 20140609
  Receipt Date: 20140609
  Transmission Date: 20141212
  Serious: Yes (Hospitalization, Other)
  Sender: FDA-Public Use
  Company Number: US-ASTELLAS-2013US009878

PATIENT
  Age: 84 Year
  Sex: Male

DRUGS (1)
  1. PROGRAF [Suspect]
     Indication: CORNEAL TRANSPLANT
     Dosage: 0.5 MG, ONCE DAILY
     Route: 065
     Dates: start: 20130227, end: 20130914

REACTIONS (12)
  - Off label use [Unknown]
  - Weight decreased [Recovered/Resolved]
  - Heart rate irregular [Unknown]
  - Decreased immune responsiveness [Unknown]
  - Diverticulitis [Unknown]
  - Hypoaesthesia [Recovered/Resolved]
  - Fatigue [Recovering/Resolving]
  - White blood cell count increased [Unknown]
  - Tremor [Recovered/Resolved]
  - Dizziness [Recovered/Resolved]
  - Decreased appetite [Recovered/Resolved]
  - Pain [Recovering/Resolving]
